FAERS Safety Report 20638363 (Version 3)
Quarter: 2022Q2

REPORT INFORMATION
  Report Type: Report from Study
  Country: US (occurrence: None)
  Receive Date: 20220325
  Receipt Date: 20220428
  Transmission Date: 20220721
  Serious: Yes (Hospitalization)
  Sender: FDA-Public Use
  Company Number: US-ROCHE-3055336

PATIENT
  Age: 65 Year
  Sex: Male
  Weight: 80.2 kg

DRUGS (10)
  1. VENETOCLAX [Suspect]
     Active Substance: VENETOCLAX
     Indication: Diffuse large B-cell lymphoma
     Dosage: MOST RECENT DOSE PRIOR TO AE //2022
     Route: 048
     Dates: start: 20220317
  2. POLATUZUMAB VEDOTIN [Suspect]
     Active Substance: POLATUZUMAB VEDOTIN
     Indication: Diffuse large B-cell lymphoma
     Dosage: START DATE OF MOST RECENT DRUG PRIOR TO SAE - 14/MAR/2022
     Route: 042
     Dates: start: 20220314
  3. RITUXIMAB [Suspect]
     Active Substance: RITUXIMAB
     Indication: Diffuse large B-cell lymphoma
     Dosage: DOSE LAST STUDY DRUG ADMIN PRIOR SAE: 375 MG?START DATE OF MOST RECENT DOSE OF STUDY DRUG PRIOR TO S
     Route: 041
     Dates: start: 20220314
  4. PREDNISONE [Suspect]
     Active Substance: PREDNISONE
     Indication: Diffuse large B-cell lymphoma
     Dosage: LAST DOSE (100 MG) ADMINISTERED PRIOR TO AE/SAE ON 15/MAR/2022. AND END DATE OF MOST RECENT DOSE OF
     Route: 048
     Dates: start: 20220314
  5. CYCLOPHOSPHAMIDE [Suspect]
     Active Substance: CYCLOPHOSPHAMIDE
     Indication: Diffuse large B-cell lymphoma
     Dosage: ON SAME DAY LAST DOSE PRIOR TO AE/SAE: 14/MAR/2022
     Route: 042
     Dates: start: 20220314
  6. DOXORUBICIN [Suspect]
     Active Substance: DOXORUBICIN
     Indication: Diffuse large B-cell lymphoma
     Dosage: ON SAME DAY LAST DOSE PRIOR TO AE/SAE: 14/MAR/2022
     Route: 042
     Dates: start: 20220314
  7. METHYLPREDNISOLONE [Suspect]
     Active Substance: METHYLPREDNISOLONE
     Indication: Diffuse large B-cell lymphoma
     Route: 042
  8. FAMOTIDINE [Concomitant]
     Active Substance: FAMOTIDINE
     Route: 048
     Dates: start: 20220203
  9. LOSARTAN [Concomitant]
     Active Substance: LOSARTAN
     Indication: Hypertension
     Route: 048
     Dates: start: 20220218
  10. ONDANSETRON [Concomitant]
     Active Substance: ONDANSETRON
     Indication: Nausea
     Route: 048
     Dates: start: 20220228

REACTIONS (1)
  - Pleural effusion [Recovered/Resolved]

NARRATIVE: CASE EVENT DATE: 20220315
